FAERS Safety Report 7133389-3 (Version None)
Quarter: 2010Q4

REPORT INFORMATION
  Report Type: 
  Country: None (occurrence: None)
  Receive Date: 20101117
  Receipt Date: 20101022
  Transmission Date: 20110411
  Serious: No
  Sender: FDA-Public Use
  Company Number: 2010-00911

PATIENT
  Age: 80 Year
  Sex: Female
  Weight: 56.6996 kg

DRUGS (3)
  1. ZICAM COLD REMEDY PLUS ORAL MIST [Suspect]
     Dosage: Q 3 HOURS X 1 DAY
     Dates: start: 20101021, end: 20101021
  2. XALATAN OPHTHALMIC DROPS [Concomitant]
  3. SYNTHROID [Concomitant]

REACTIONS (1)
  - AGEUSIA [None]
